FAERS Safety Report 10247027 (Version 1)
Quarter: 2014Q2

REPORT INFORMATION
  Report Type: Spontaneous
  Country: CH (occurrence: CH)
  Receive Date: 20140619
  Receipt Date: 20140619
  Transmission Date: 20141212
  Serious: Yes (Hospitalization)
  Sender: FDA-Public Use
  Company Number: CH-PFIZER INC-2014162232

PATIENT
  Age: 50 Year
  Sex: Female

DRUGS (5)
  1. VENLAFAXINE HCL [Suspect]
     Indication: DEPRESSION
     Dosage: 225 MG, DAILY
     Route: 048
     Dates: start: 20140224, end: 20140318
  2. VENLAFAXINE HCL [Interacting]
     Dosage: 300 MG, DAILY
     Route: 048
     Dates: start: 20140319, end: 20140324
  3. DEMETRIN [Interacting]
     Indication: ANXIETY
     Dosage: 10 MG, DAILY
     Route: 048
     Dates: end: 20140223
  4. DEMETRIN [Interacting]
     Dosage: 20 MG, DAILY
     Route: 048
     Dates: start: 20140224, end: 20140324
  5. TRITTICO [Interacting]
     Indication: DEPRESSION
     Dosage: 100 MG, 1X/DAY
     Route: 048
     Dates: end: 20140324

REACTIONS (11)
  - Hyponatraemia [Recovered/Resolved]
  - Confusional state [Recovered/Resolved]
  - Disorientation [Recovered/Resolved]
  - Psychomotor skills impaired [Recovered/Resolved]
  - Walking disability [Recovered/Resolved]
  - Vertigo [Recovered/Resolved]
  - Nystagmus [Unknown]
  - Pupils unequal [Unknown]
  - Dry mouth [Unknown]
  - Drug interaction [Unknown]
  - Hypotension [Unknown]
